FAERS Safety Report 7925928-7 (Version None)
Quarter: 2011Q4

REPORT INFORMATION
  Report Type: 
  Country: None (occurrence: None)
  Receive Date: 20111118
  Receipt Date: 20110414
  Transmission Date: 20120403
  Serious: No
  Sender: FDA-Public Use
  Company Number: US-AMGEN-USASP2011011577

PATIENT
  Age: 59 Year
  Sex: Female

DRUGS (2)
  1. ENBREL [Suspect]
     Indication: PSORIATIC ARTHROPATHY
     Dosage: 50 MG, QWK
     Dates: start: 20110204
  2. ENBREL [Suspect]
     Indication: PSORIASIS

REACTIONS (8)
  - INJECTION SITE REACTION [None]
  - INJECTION SITE ERYTHEMA [None]
  - HEADACHE [None]
  - NASOPHARYNGITIS [None]
  - FATIGUE [None]
  - TINNITUS [None]
  - PSORIASIS [None]
  - INJECTION SITE PAIN [None]
